FAERS Safety Report 6856555-0 (Version None)
Quarter: 2010Q3

REPORT INFORMATION
  Report Type: 
  Country: None (occurrence: None)
  Receive Date: 20100719
  Receipt Date: 20100712
  Transmission Date: 20110219
  Serious: Yes (Hospitalization)
  Sender: FDA-Public Use
  Company Number: AU-ROCHE-714801

PATIENT
  Age: 37 Year
  Sex: Female

DRUGS (1)
  1. PEGASYS [Suspect]
     Indication: PRODUCT USED FOR UNKNOWN INDICATION
     Route: 065

REACTIONS (12)
  - ABDOMINAL PAIN [None]
  - CIRCULATORY COLLAPSE [None]
  - COLITIS ULCERATIVE [None]
  - CONFUSIONAL STATE [None]
  - CONVULSION [None]
  - DIZZINESS [None]
  - EPIGASTRIC DISCOMFORT [None]
  - HYPERTENSION [None]
  - PARAESTHESIA [None]
  - POLYARTERITIS NODOSA [None]
  - RASH [None]
  - SOMNOLENCE [None]
